FAERS Safety Report 9210491 (Version 2)
Quarter: 2013Q3

REPORT INFORMATION
  Report Type: Spontaneous
  Country: US (occurrence: US)
  Receive Date: 20130404
  Receipt Date: 20130830
  Transmission Date: 20140515
  Serious: No
  Sender: FDA-Public Use
  Company Number: US-PFIZER INC-2013103118

PATIENT
  Age: 57 Year
  Sex: Female
  Weight: 50.8 kg

DRUGS (2)
  1. LEVOXYL [Suspect]
     Indication: HYPOTHYROIDISM
     Dosage: 75 UG (ONE TABLET OF 50UG AND OTHER 25UG BY SPLITTING 50UG), 1X/DAY
     Route: 048
     Dates: start: 2010
  2. LEVOXYL [Suspect]
     Indication: THYROID DISORDER

REACTIONS (2)
  - Back pain [Unknown]
  - Dysphagia [Unknown]
